FAERS Safety Report 25755409 (Version 3)
Quarter: 2025Q4

REPORT INFORMATION
  Report Type: Spontaneous
  Country: EG (occurrence: EG)
  Receive Date: 20250903
  Receipt Date: 20251018
  Transmission Date: 20260118
  Serious: Yes (Hospitalization, Other)
  Sender: HETERO
  Company Number: EG-AMAROX PHARMA-HET2025EG05166

PATIENT
  Age: 20 Year
  Sex: Female
  Weight: 54 kg

DRUGS (3)
  1. FINGOLIMOD [Suspect]
     Active Substance: FINGOLIMOD
     Indication: Multiple sclerosis
     Dosage: 1 DOSAGE FORM, QD (1 TABLET ONCE DAILY)
     Route: 048
     Dates: start: 202508
  2. LEVETIRACETAM [Concomitant]
     Active Substance: LEVETIRACETAM
     Indication: Product used for unknown indication
     Dosage: 500 MILLIGRAM
     Route: 065
  3. ESCITALOPRAM OXALATE [Concomitant]
     Active Substance: ESCITALOPRAM OXALATE
     Indication: Product used for unknown indication
     Dosage: UNK
     Route: 065

REACTIONS (5)
  - Angina pectoris [Recovered/Resolved]
  - Acne [Recovered/Resolved]
  - Erythema [Recovered/Resolved]
  - Pruritus [Not Recovered/Not Resolved]
  - Product substitution issue [Unknown]

NARRATIVE: CASE EVENT DATE: 20250801
